FAERS Safety Report 7018358-6 (Version None)
Quarter: 2010Q3

REPORT INFORMATION
  Report Type: 
  Country: None (occurrence: None)
  Receive Date: 20100924
  Receipt Date: 20100910
  Transmission Date: 20110219
  Serious: Yes (Death, Other)
  Sender: FDA-Public Use
  Company Number: 011103

PATIENT

DRUGS (7)
  1. BUSULFEX [Suspect]
     Indication: STEM CELL TRANSPLANT
     Dosage: INTRAVENOUS
     Route: 042
  2. FLUDARABINE [Concomitant]
  3. CYCLOPHOSPHAMIDE [Concomitant]
  4. TACROLIMUS [Concomitant]
  5. METHOTREXATE [Concomitant]
  6. MYCOPHENOLATE MOFETIL [Concomitant]
  7. URSODIOL [Concomitant]

REACTIONS (18)
  - ACUTE GRAFT VERSUS HOST DISEASE [None]
  - ACUTE GRAFT VERSUS HOST DISEASE IN INTESTINE [None]
  - ACUTE GRAFT VERSUS HOST DISEASE IN LIVER [None]
  - ACUTE GRAFT VERSUS HOST DISEASE IN SKIN [None]
  - ANAEMIA [None]
  - BLOOD CREATININE INCREASED [None]
  - BLOOD LACTATE DEHYDROGENASE [None]
  - CARDIOTOXICITY [None]
  - CHRONIC GRAFT VERSUS HOST DISEASE [None]
  - DISEASE RECURRENCE [None]
  - GASTROINTESTINAL TOXICITY [None]
  - HEPATOTOXICITY [None]
  - INFECTION [None]
  - MUCOSAL INFLAMMATION [None]
  - PULMONARY TOXICITY [None]
  - RED BLOOD CELL ABNORMALITY [None]
  - THROMBOCYTOPENIA [None]
  - VENOOCCLUSIVE DISEASE [None]
